FAERS Safety Report 4742588-7 (Version None)
Quarter: 2005Q3

REPORT INFORMATION
  Report Type: 
  Country: None (occurrence: None)
  Receive Date: 20050808
  Receipt Date: 20050721
  Transmission Date: 20060218
  Serious: Yes (Hospitalization, Other)
  Sender: FDA-Public Use
  Company Number: US_0410107114

PATIENT
  Age: 35 Year
  Sex: Female

DRUGS (6)
  1. ZYPREXA [Suspect]
     Indication: PSYCHOTIC DISORDER
     Dosage: 25 MG DAY
     Dates: start: 20020904, end: 20021217
  2. COGENTIN [Concomitant]
  3. DEPAKOTE [Concomitant]
  4. NPH INSULIN [Concomitant]
  5. REGULAR INSULIN (INSULIN /00030501/) [Concomitant]
  6. TRAZODONE [Concomitant]

REACTIONS (28)
  - ASPERGILLOSIS [None]
  - ATELECTASIS [None]
  - BLOOD CHOLESTEROL INCREASED [None]
  - BLOOD TRIGLYCERIDES INCREASED [None]
  - DEHYDRATION [None]
  - DEPRESSED LEVEL OF CONSCIOUSNESS [None]
  - DIABETIC COMA [None]
  - ELECTROCARDIOGRAM QT PROLONGED [None]
  - ENCEPHALOPATHY [None]
  - FUNGAL INFECTION [None]
  - HAEMATOCRIT DECREASED [None]
  - HAEMATOCRIT INCREASED [None]
  - HALLUCINATION [None]
  - HEADACHE [None]
  - HEPATIC STEATOSIS [None]
  - HYPERGLYCAEMIA [None]
  - HYPEROSMOLAR STATE [None]
  - INFLUENZA LIKE ILLNESS [None]
  - MYOCARDIAL ISCHAEMIA [None]
  - PANCREATITIS [None]
  - PLEURAL EFFUSION [None]
  - PNEUMONIA [None]
  - RENAL FAILURE ACUTE [None]
  - RESPIRATORY FAILURE [None]
  - SINUS TACHYCARDIA [None]
  - STAPHYLOCOCCAL SEPSIS [None]
  - STREPTOCOCCAL INFECTION [None]
  - VISION BLURRED [None]
